FAERS Safety Report 6293858-5 (Version None)
Quarter: 2009Q3

REPORT INFORMATION
  Report Type: 
  Country: None (occurrence: None)
  Receive Date: 20090730
  Receipt Date: 20090720
  Transmission Date: 20100115
  Serious: Yes (Other)
  Sender: FDA-Public Use
  Company Number: 8049260

PATIENT

DRUGS (1)
  1. CIMZIA [Suspect]

REACTIONS (1)
  - ADENOCARCINOMA [None]
